FAERS Safety Report 5156778-5 (Version None)
Quarter: 2006Q4

REPORT INFORMATION
  Report Type: 
  Country: None (occurrence: None)
  Receive Date: 20061115
  Receipt Date: 20061104
  Transmission Date: 20070319
  Serious: Yes (Other)
  Sender: FDA-Public Use
  Company Number: 15136

PATIENT
  Age: 52 Year
  Sex: Male

DRUGS (4)
  1. FLUOROURACIL [Suspect]
     Indication: RECTAL CANCER STAGE IV
  2. IRINOTECAN HCL [Suspect]
     Indication: RECTAL CANCER STAGE IV
  3. LEUCOVORIN CALCIUM [Suspect]
     Indication: RECTAL CANCER STAGE IV
  4. AVASTIN [Suspect]
     Indication: RECTAL CANCER STAGE IV

REACTIONS (1)
  - REVERSIBLE POSTERIOR LEUKOENCEPHALOPATHY SYNDROME [None]
